FAERS Safety Report 9158180 (Version 1)
Quarter: 2013Q1

REPORT INFORMATION
  Report Type: Spontaneous
  Country: US (occurrence: US)
  Receive Date: 20130312
  Receipt Date: 20130312
  Transmission Date: 20140127
  Serious: Yes (Hospitalization)
  Sender: FDA-Public Use
  Company Number: US-BAYER-2013-028282

PATIENT
  Age: 37 Year
  Sex: Female
  Weight: 76.19 kg

DRUGS (19)
  1. YAZ [Suspect]
     Indication: MENSTRUAL CYCLE MANAGEMENT
  2. YASMIN [Suspect]
  3. PREDNISONE [Concomitant]
     Dosage: 10 MG, TAKE 3 TABS BY MOUTH TWICE DAILY FOR 3 DAYS, THEN 2 TWICE DAILY FOR 3 DAYS, THEN 1 TWICE DAIL
     Route: 048
  4. LYRICA [Concomitant]
     Dosage: 75 MG, TAKE 1 AT BEDTIME FOR 3 NIGHTS THEN TAKE 1 TWICE DAILY
     Route: 048
  5. SILVERDIN [Concomitant]
     Dosage: 1 %, UNK
  6. ZYRTEC [CETIRIZINE HYDROCHLORIDE] [Concomitant]
     Indication: RHINITIS
     Dosage: 10 MG, DAILY
  7. ZYRTEC [CETIRIZINE HYDROCHLORIDE] [Concomitant]
     Indication: MULTIPLE ALLERGIES
  8. PATADAY 1% [Concomitant]
     Indication: CONJUNCTIVITIS ALLERGIC
     Dosage: 1 %, 1 DROP EACH EYE
  9. PATADAY 1% [Concomitant]
     Indication: EYE PRURITUS
  10. DEXPAK [Concomitant]
     Indication: RHINITIS
     Dosage: AS DIRECTED FOR 10 DAYS
  11. BETAMETHASONE AC W/BETAMETHASONE SOD PHOS [Concomitant]
     Dosage: 3 MG, UNK
     Route: 042
  12. TRIAMCINOLONE ACETONIDE [Concomitant]
     Dosage: 10 MG, BID
     Route: 042
  13. IBUPROFEN [IBUPROFEN] [Concomitant]
     Indication: PYREXIA
  14. BACTRIM DS [Concomitant]
     Indication: URINARY TRACT INFECTION
  15. BACTOBAN OINTMENT [Concomitant]
     Route: 061
  16. WESTCOTT [Concomitant]
  17. ATARAX [ALPRAZOLAM] [Concomitant]
     Indication: PRURITUS
  18. HYDROXYZINE [Concomitant]
     Indication: PRURITUS
  19. ADIPEX [Concomitant]
     Dosage: 37.5 MG, ONCE DAILY

REACTIONS (2)
  - Deep vein thrombosis [Recovered/Resolved]
  - Thrombophlebitis superficial [Recovered/Resolved]
